FAERS Safety Report 7231439-7 (Version None)
Quarter: 2011Q1

REPORT INFORMATION
  Report Type: 
  Country: None (occurrence: None)
  Receive Date: 20110118
  Receipt Date: 20110106
  Transmission Date: 20110831
  Serious: Yes (Death, Other)
  Sender: FDA-Public Use
  Company Number: FR-PFIZER INC-2011003441

PATIENT
  Age: 88 Year
  Sex: Male

DRUGS (5)
  1. PREVISCAN [Suspect]
     Dosage: 1 DF, 1X/DAY
     Route: 048
     Dates: start: 20100901
  2. LANSOPRAZOLE [Suspect]
     Dosage: UNK
     Route: 048
     Dates: start: 20101005
  3. DALACINE [Suspect]
     Indication: OSTEITIS
     Dosage: 300 MG, 6X/DAY
     Route: 048
     Dates: start: 20101012, end: 20101121
  4. FUCIDINE [Suspect]
     Indication: OSTEITIS
     Dosage: 250 MG, 6X/DAY
     Route: 048
     Dates: start: 20101012, end: 20101121
  5. NEURONTIN [Suspect]
     Dosage: 400 MG, 3X/DAY
     Route: 048

REACTIONS (4)
  - RENAL FAILURE [None]
  - LIVER INJURY [None]
  - RHABDOMYOLYSIS [None]
  - SEPTIC SHOCK [None]
